FAERS Safety Report 5708324-2 (Version None)
Quarter: 2008Q2

REPORT INFORMATION
  Report Type: 
  Country: None (occurrence: None)
  Receive Date: 20080414
  Receipt Date: 20061127
  Transmission Date: 20081010
  Serious: Yes (Hospitalization)
  Sender: FDA-Public Use
  Company Number: 2006VX002360

PATIENT
  Age: 64 Year
  Sex: Female
  Weight: 75 kg

DRUGS (5)
  1. PRIMIDONE [Suspect]
     Indication: EPILEPSY
     Dates: start: 19990101, end: 19990101
  2. PRIMIDONE [Suspect]
     Indication: EPILEPSY
     Dates: start: 20060101
  3. MYSOLINE [Concomitant]
  4. RENITEC [Concomitant]
  5. ORFIRRIL [Concomitant]

REACTIONS (4)
  - CONDITION AGGRAVATED [None]
  - EPILEPSY [None]
  - GENERAL PHYSICAL HEALTH DETERIORATION [None]
  - SPEECH DISORDER [None]
